FAERS Safety Report 18051853 (Version 3)
Quarter: 2020Q3

REPORT INFORMATION
  Report Type: Spontaneous
  Country: DE (occurrence: DE)
  Receive Date: 20200721
  Receipt Date: 20200908
  Transmission Date: 20201103
  Serious: Yes (Life-Threatening, Hospitalization, Other)
  Sender: FDA-Public Use
  Company Number: DE-CELGENEUS-DEU-20200600511

PATIENT
  Age: 59 Year
  Sex: Female
  Weight: 63 kg

DRUGS (3)
  1. OPIPRAMOL [Concomitant]
     Active Substance: OPIPRAMOL
     Indication: RESTLESSNESS
     Route: 065
  2. ABRAXANE [Suspect]
     Active Substance: PACLITAXEL
     Indication: BREAST CANCER
     Dosage: 100 MILLIGRAM/SQ. METER
     Route: 041
     Dates: start: 20200130, end: 20200507
  3. CARBOPLATIN. [Concomitant]
     Active Substance: CARBOPLATIN
     Indication: BREAST CANCER
     Dosage: AUC 2
     Route: 065
     Dates: start: 20200130, end: 20200507

REACTIONS (6)
  - Pneumonitis chemical [Recovered/Resolved]
  - Delirium [Recovered/Resolved]
  - Acute respiratory distress syndrome [Recovered/Resolved]
  - Blood electrolytes abnormal [Recovered/Resolved]
  - Pancytopenia [Recovered/Resolved]
  - Transaminases increased [Recovered/Resolved]

NARRATIVE: CASE EVENT DATE: 2020
